FAERS Safety Report 4294928-3 (Version None)
Quarter: 2004Q1

REPORT INFORMATION
  Report Type: 
  Country: None (occurrence: None)
  Receive Date: 20040216
  Receipt Date: 20030304
  Transmission Date: 20041129
  Serious: No
  Sender: FDA-Public Use
  Company Number: US-GLAXOSMITHKLINE-A0398862A

PATIENT
  Age: 40 Year
  Sex: Female

DRUGS (2)
  1. LAMICTAL [Suspect]
     Dosage: 350MG PER DAY
     Route: 048
     Dates: start: 20020701
  2. EFFEXOR [Concomitant]

REACTIONS (2)
  - DEPRESSION [None]
  - RASH GENERALISED [None]
